FAERS Safety Report 9348774 (Version 1)
Quarter: 2013Q2

REPORT INFORMATION
  Report Type: Spontaneous
  Country: US (occurrence: US)
  Receive Date: 20130614
  Receipt Date: 20130614
  Transmission Date: 20140414
  Serious: Yes (Death, Hospitalization)
  Sender: FDA-Public Use
  Company Number: US-MYLANLABS-2013S1012568

PATIENT
  Sex: Female

DRUGS (2)
  1. DILANTIN [Suspect]
     Indication: CONVULSION PROPHYLAXIS
     Route: 042
     Dates: start: 20120325, end: 2012
  2. EXTENDED PHENYTOIN SODIUM CAPSULES, USP [Suspect]
     Indication: CONVULSION PROPHYLAXIS
     Route: 048
     Dates: start: 20120412

REACTIONS (7)
  - Hypersensitivity [Fatal]
  - Renal failure [Fatal]
  - Mental impairment [Fatal]
  - Unresponsive to stimuli [Fatal]
  - Blister [Fatal]
  - Haemorrhage [Fatal]
  - Skin exfoliation [Fatal]
